FAERS Safety Report 24169198 (Version 1)
Quarter: 2024Q3

REPORT INFORMATION
  Report Type: Spontaneous
  Country: GB (occurrence: GB)
  Receive Date: 20240802
  Receipt Date: 20240802
  Transmission Date: 20241017
  Serious: Yes (Other)
  Sender: TEVA
  Company Number: GB-MHRA-TPP20821356C15193189YC1722430050897

PATIENT
  Age: 56 Year
  Sex: Male
  Weight: 72 kg

DRUGS (12)
  1. TRAMADOL [Suspect]
     Active Substance: TRAMADOL\TRAMADOL HYDROCHLORIDE
     Indication: Ill-defined disorder
     Dosage: 50MG MODIFIED-RELEASE TABLETS
     Route: 065
     Dates: start: 20240501
  2. ALVERINE CITRATE [Concomitant]
     Active Substance: ALVERINE CITRATE
     Indication: Ill-defined disorder
     Dosage: 1TDS, TPP YC - PLEASE RECLASSIFY
     Route: 065
     Dates: start: 20231130
  3. ASPIRIN [Concomitant]
     Active Substance: ASPIRIN
     Indication: Ill-defined disorder
     Dosage: TAKE ONE DAILY, TPP YC - PLEASE RECLASSIFY
     Route: 065
     Dates: start: 20240327
  4. ONDANSETRON [Concomitant]
     Active Substance: ONDANSETRON
     Indication: Ill-defined disorder
     Dosage: TAKE ONE UPTO TWICE DAILY AS NEEDED, TPP YC - PLEASE RECLASSIFY
     Route: 065
     Dates: start: 20240603
  5. MACROGOL COMPOUND [Concomitant]
     Indication: Ill-defined disorder
     Dosage: USE AS DIRECTED, TPP YC - PLEASE RECLASSIFY
     Route: 065
     Dates: start: 20240605
  6. RAMIPRIL [Concomitant]
     Active Substance: RAMIPRIL
     Indication: Ill-defined disorder
     Dosage: TAKE ONE DAILY, TPP YC - PLEASE RECLASSIFY
     Route: 065
     Dates: start: 20240327
  7. PREGABALIN [Concomitant]
     Active Substance: PREGABALIN
     Indication: Ill-defined disorder
     Dosage: AS DIRECTED, TPP YC - PLEASE RECLASSIFY
     Route: 065
     Dates: start: 20240410
  8. OMEPRAZOLE [Concomitant]
     Active Substance: OMEPRAZOLE
     Indication: Ill-defined disorder
     Dosage: 2OD, TPP YC - PLEASE RECLASSIFY
     Route: 065
     Dates: start: 20240327
  9. ATORVASTATIN [Concomitant]
     Active Substance: ATORVASTATIN
     Indication: Ill-defined disorder
     Dosage: TAKE ONE DAILY, TPP YC - PLEASE RECLASSIFY
     Route: 065
     Dates: start: 20240327
  10. UNIROID [Concomitant]
     Indication: Ill-defined disorder
     Dosage: APPLY AS DIRECTED, TPP YC - PLEASE RECLASSIFY
     Route: 065
     Dates: start: 20240626
  11. LAMOTRIGINE [Concomitant]
     Active Substance: LAMOTRIGINE
     Indication: Ill-defined disorder
     Dosage: 1BD, TPP YC - PLEASE RECLASSIFY
     Route: 065
     Dates: start: 20240327
  12. NITROGLYCERIN [Concomitant]
     Active Substance: NITROGLYCERIN
     Indication: Ill-defined disorder
     Dosage: ONE PUFF AS NEEDED. IF USING REGULARLY MORE THA.., TPP YC - PLEASE RECLASSIFY
     Route: 065
     Dates: start: 20230406

REACTIONS (1)
  - Rash pruritic [Recovered/Resolved]

NARRATIVE: CASE EVENT DATE: 20240501
